FAERS Safety Report 6911998-1 (Version None)
Quarter: 2010Q3

REPORT INFORMATION
  Report Type: 
  Country: None (occurrence: None)
  Receive Date: 20100806
  Receipt Date: 20100803
  Transmission Date: 20110219
  Serious: Yes (Hospitalization)
  Sender: FDA-Public Use
  Company Number: DE-AMGEN-QUU415702

PATIENT
  Age: 36 Year
  Sex: Male
  Weight: 88 kg

DRUGS (2)
  1. NPLATE [Suspect]
     Indication: THROMBOCYTOPENIA
     Route: 058
     Dates: start: 20100504, end: 20100504
  2. PREDNISOLONE [Concomitant]
     Route: 048
     Dates: start: 20100401, end: 20100501

REACTIONS (3)
  - CEREBRAL INFARCTION [None]
  - DYSARTHRIA [None]
  - VERTIGO [None]
